FAERS Safety Report 11281735 (Version 1)
Quarter: 2015Q3

REPORT INFORMATION
  Report Type: Spontaneous
  Country: PL (occurrence: PL)
  Receive Date: 20150717
  Receipt Date: 20150717
  Transmission Date: 20151125
  Serious: Yes (Other)
  Sender: FDA-Public Use
  Company Number: PL-BAXTER-2015BAX038226

PATIENT
  Age: 38 Year
  Sex: Male

DRUGS (19)
  1. ENDOXAN [Suspect]
     Active Substance: CYCLOPHOSPHAMIDE
     Indication: CHRONIC LYMPHOCYTIC LEUKAEMIA STAGE 2
     Route: 065
     Dates: start: 2005
  2. FLUDARABINE [Suspect]
     Active Substance: FLUDARABINE PHOSPHATE
     Indication: CHRONIC LYMPHOCYTIC LEUKAEMIA STAGE 4
     Route: 065
     Dates: start: 201110
  3. CAMPATH [Suspect]
     Active Substance: ALEMTUZUMAB
     Indication: CHRONIC LYMPHOCYTIC LEUKAEMIA STAGE 2
     Route: 065
     Dates: start: 200805
  4. CYCLOSPORIN [Suspect]
     Active Substance: CYCLOSPORINE
     Route: 048
     Dates: start: 201110
  5. CAMPATH [Suspect]
     Active Substance: ALEMTUZUMAB
     Indication: CHRONIC LYMPHOCYTIC LEUKAEMIA RECURRENT
  6. MABTHERA [Suspect]
     Active Substance: RITUXIMAB
     Indication: CHRONIC LYMPHOCYTIC LEUKAEMIA STAGE 4
     Route: 065
     Dates: start: 200912, end: 201010
  7. ENDOXAN [Suspect]
     Active Substance: CYCLOPHOSPHAMIDE
     Indication: CHRONIC LYMPHOCYTIC LEUKAEMIA STAGE 4
     Route: 065
     Dates: start: 201112
  8. CLADRIBINE. [Suspect]
     Active Substance: CLADRIBINE
     Indication: CHRONIC LYMPHOCYTIC LEUKAEMIA STAGE 2
     Route: 065
     Dates: start: 200208, end: 200301
  9. CYCLOSPORIN [Suspect]
     Active Substance: CYCLOSPORINE
     Indication: PROPHYLAXIS AGAINST GRAFT VERSUS HOST DISEASE
     Route: 042
     Dates: start: 201110
  10. FLUDARABINE [Suspect]
     Active Substance: FLUDARABINE PHOSPHATE
     Indication: CHRONIC LYMPHOCYTIC LEUKAEMIA RECURRENT
     Route: 065
     Dates: start: 200912, end: 201010
  11. METHOTREXATE [Suspect]
     Active Substance: METHOTREXATE
     Indication: PROPHYLAXIS AGAINST GRAFT VERSUS HOST DISEASE
     Route: 065
     Dates: start: 201110
  12. CLADRIBINE. [Suspect]
     Active Substance: CLADRIBINE
     Indication: CHRONIC LYMPHOCYTIC LEUKAEMIA RECURRENT
     Route: 065
     Dates: start: 2005
  13. FLUDARABINE [Suspect]
     Active Substance: FLUDARABINE PHOSPHATE
     Indication: BONE MARROW CONDITIONING REGIMEN
  14. ENDOXAN [Suspect]
     Active Substance: CYCLOPHOSPHAMIDE
     Indication: CHRONIC LYMPHOCYTIC LEUKAEMIA RECURRENT
     Route: 065
     Dates: start: 200912, end: 201010
  15. ENDOXAN [Suspect]
     Active Substance: CYCLOPHOSPHAMIDE
     Indication: BONE MARROW CONDITIONING REGIMEN
  16. FLUDARABINE [Suspect]
     Active Substance: FLUDARABINE PHOSPHATE
     Indication: CHRONIC LYMPHOCYTIC LEUKAEMIA STAGE 2
     Route: 065
     Dates: start: 200805
  17. MELPHALAN [Suspect]
     Active Substance: MELPHALAN
     Indication: BONE MARROW CONDITIONING REGIMEN
     Route: 065
     Dates: start: 201110
  18. CYCLOSPORIN [Suspect]
     Active Substance: CYCLOSPORINE
     Route: 065
  19. MYCOPHENOLATE MOFETIL. [Suspect]
     Active Substance: MYCOPHENOLATE MOFETIL
     Indication: PROPHYLAXIS AGAINST GRAFT VERSUS HOST DISEASE
     Route: 065
     Dates: start: 201112

REACTIONS (10)
  - Hypogammaglobulinaemia [Unknown]
  - Chronic lymphocytic leukaemia stage 2 [Recovered/Resolved]
  - Herpes virus infection [Unknown]
  - Viral infection [Unknown]
  - Chronic lymphocytic leukaemia recurrent [Recovered/Resolved]
  - Transplant failure [Recovered/Resolved]
  - Cytomegalovirus infection [Unknown]
  - Renal failure [Unknown]
  - Chronic lymphocytic leukaemia stage 4 [Recovered/Resolved]
  - Acute graft versus host disease [Recovered/Resolved]

NARRATIVE: CASE EVENT DATE: 200805
